FAERS Safety Report 25865167 (Version 1)
Quarter: 2025Q3

REPORT INFORMATION
  Report Type: Spontaneous
  Country: EU (occurrence: EU)
  Receive Date: 20250930
  Receipt Date: 20250930
  Transmission Date: 20251021
  Serious: Yes (Other)
  Sender: FRESENIUS KABI
  Company Number: None

PATIENT
  Age: 74 Year
  Sex: Female

DRUGS (1)
  1. OXALIPLATIN [Suspect]
     Active Substance: OXALIPLATIN
     Indication: Rectal adenocarcinoma
     Dosage: FOA-CONCENTRATE FOR SOLUTION FOR INFUSION
     Route: 042
     Dates: start: 20250909

REACTIONS (5)
  - Pain in extremity [Recovered/Resolved]
  - Paraesthesia [Recovering/Resolving]
  - Muscular weakness [Recovering/Resolving]
  - Tongue dry [Recovering/Resolving]
  - Tongue movement disturbance [Recovering/Resolving]

NARRATIVE: CASE EVENT DATE: 20250909
